FAERS Safety Report 24260147 (Version 1)
Quarter: 2024Q3

REPORT INFORMATION
  Report Type: Spontaneous
  Country: US (occurrence: US)
  Receive Date: 20240828
  Receipt Date: 20240828
  Transmission Date: 20241017
  Serious: No
  Sender: SANOFI AVENTIS
  Company Number: US-SA-SAC20240821000537

PATIENT
  Age: 50 Year
  Sex: Female

DRUGS (4)
  1. DUPIXENT [Suspect]
     Active Substance: DUPILUMAB
     Indication: Nasal polyps
     Dosage: 300 MG, QOW
     Route: 058
     Dates: start: 20240521
  2. DUPIXENT [Suspect]
     Active Substance: DUPILUMAB
     Indication: Asthma
  3. DUPIXENT [Suspect]
     Active Substance: DUPILUMAB
     Indication: Nasal disorder
  4. DUPIXENT [Suspect]
     Active Substance: DUPILUMAB
     Indication: Ocular discomfort

REACTIONS (10)
  - Nasal disorder [Unknown]
  - Ocular discomfort [Unknown]
  - Nasal congestion [Unknown]
  - Eye pain [Unknown]
  - Vision blurred [Unknown]
  - Eye irritation [Unknown]
  - Injection site bruising [Unknown]
  - Injection site pain [Unknown]
  - Inappropriate schedule of product administration [Unknown]
  - Product use in unapproved indication [Unknown]

NARRATIVE: CASE EVENT DATE: 20240101
